FAERS Safety Report 18145513 (Version 1)
Quarter: 2020Q3

REPORT INFORMATION
  Report Type: Spontaneous
  Country: US (occurrence: US)
  Receive Date: 20200813
  Receipt Date: 20200813
  Transmission Date: 20201103
  Serious: No
  Sender: FDA-Public Use
  Company Number: US-ASTRAZENECA-2020SE90741

PATIENT
  Sex: Female

DRUGS (1)
  1. PULMICORT FLEXHALER [Suspect]
     Active Substance: BUDESONIDE
     Indication: COVID-19
     Route: 055
     Dates: start: 20200706

REACTIONS (6)
  - Frustration tolerance decreased [Unknown]
  - Product dose omission issue [Unknown]
  - Off label use [Unknown]
  - Wrong technique in device usage process [Unknown]
  - Device issue [Unknown]
  - Intentional device misuse [Unknown]
